FAERS Safety Report 18022739 (Version 1)
Quarter: 2020Q3

REPORT INFORMATION
  Report Type: Spontaneous
  Country: HR (occurrence: HR)
  Receive Date: 20200715
  Receipt Date: 20200715
  Transmission Date: 20201103
  Serious: Yes (Other)
  Sender: FDA-Public Use
  Company Number: HR-ROCHE-2639075

PATIENT
  Age: 61 Year
  Sex: Male

DRUGS (5)
  1. COPEGUS [Suspect]
     Active Substance: RIBAVIRIN
     Indication: HEPATITIS C
     Route: 065
  2. CONTROLOC [Concomitant]
     Active Substance: PANTOPRAZOLE SODIUM
  3. LYRICA [Concomitant]
     Active Substance: PREGABALIN
  4. EPCLUSA [Suspect]
     Active Substance: SOFOSBUVIR\VELPATASVIR
     Indication: HEPATITIS C
     Dosage: 1 DOSAGE FORM
     Route: 048
     Dates: start: 20191015
  5. ANDOL (CROATIA) [Concomitant]

REACTIONS (2)
  - Hepatitis C [Unknown]
  - Treatment failure [Unknown]
